FAERS Safety Report 18340939 (Version 1)
Quarter: 2020Q4

REPORT INFORMATION
  Report Type: Spontaneous
  Country: US (occurrence: US)
  Receive Date: 20201003
  Receipt Date: 20201003
  Transmission Date: 20210113
  Serious: No
  Sender: FDA-Public Use
  Company Number: US-DRREDDYS-USA/USA/20/0127213

PATIENT
  Age: 61 Year
  Sex: Female
  Weight: 66.15 kg

DRUGS (4)
  1. FEXOFENADINE HCL 60 MG AND PSEUDOEPHEDRINE HCL ER 120 MG [Suspect]
     Active Substance: FEXOFENADINE HYDROCHLORIDE\PSEUDOEPHEDRINE HYDROCHLORIDE
     Dosage: PSEUDOEPHEDRINE HCL 120 MG
     Route: 048
     Dates: end: 20200918
  2. FEXOFENADINE HCL 60 MG AND PSEUDOEPHEDRINE HCL ER 120 MG [Suspect]
     Active Substance: FEXOFENADINE HYDROCHLORIDE\PSEUDOEPHEDRINE HYDROCHLORIDE
     Indication: HYPERSENSITIVITY
     Dosage: FEXOFENADINE HCL 60 MG AND PSEUDOEPHEDRINE HCL ER 120 MG
     Route: 048
     Dates: end: 20200918
  3. IBUPROFEN. [Concomitant]
     Active Substance: IBUPROFEN
     Indication: SINUS HEADACHE
  4. ALPRAZOLAM. [Concomitant]
     Active Substance: ALPRAZOLAM
     Indication: PRODUCT USED FOR UNKNOWN INDICATION

REACTIONS (5)
  - Product dose omission issue [Unknown]
  - Product quality issue [Unknown]
  - Product residue present [Unknown]
  - Incorrect dose administered [Unknown]
  - Drug ineffective [Unknown]
